FAERS Safety Report 21876655 (Version 1)
Quarter: 2023Q1

REPORT INFORMATION
  Report Type: Spontaneous
  Country: BR (occurrence: BR)
  Receive Date: 20230118
  Receipt Date: 20230118
  Transmission Date: 20230417
  Serious: Yes (Death, Hospitalization)
  Sender: FDA-Public Use
  Company Number: BR-STRIDES ARCOLAB LIMITED-2023SP000647

PATIENT
  Age: 40 Year
  Sex: Male

DRUGS (27)
  1. ETOPOSIDE [Suspect]
     Active Substance: ETOPOSIDE
     Indication: Plasmablastic lymphoma
     Dosage: UNK UNK, CYCLICAL; SIX CYCLES DAEPOCH REGIMEN
     Route: 065
  2. ETOPOSIDE [Suspect]
     Active Substance: ETOPOSIDE
     Indication: Non-Hodgkin^s lymphoma
     Dosage: UNK;  IVAC PROTOCOL
     Route: 065
  3. ETOPOSIDE [Suspect]
     Active Substance: ETOPOSIDE
     Dosage: UNK UNK, CYCLICAL; EPOCH REGIMEN
     Route: 065
  4. PREDNISOLONE [Suspect]
     Active Substance: PREDNISOLONE
     Indication: Plasmablastic lymphoma
     Dosage: UNK UNK, CYCLICAL; SIX CYCLES DAEPOCH REGIMEN
     Route: 065
  5. PREDNISOLONE [Suspect]
     Active Substance: PREDNISOLONE
     Indication: Non-Hodgkin^s lymphoma
     Dosage: UNK UNK, CYCLICAL; EPOCH REGIMEN
     Route: 065
  6. DOXORUBICIN [Suspect]
     Active Substance: DOXORUBICIN
     Indication: Plasmablastic lymphoma
     Dosage: UNK UNK, CYCLICAL; SIX CYCLES DAEPOCH REGIMEN
     Route: 065
  7. DOXORUBICIN [Suspect]
     Active Substance: DOXORUBICIN
     Indication: Non-Hodgkin^s lymphoma
     Dosage: UNK UNK, CYCLICAL; EPOCH REGIMEN
     Route: 065
  8. METHOTREXATE [Suspect]
     Active Substance: METHOTREXATE
     Indication: Plasmablastic lymphoma
     Dosage: UNK; IVAC PROTOCOL
     Route: 065
  9. METHOTREXATE [Suspect]
     Active Substance: METHOTREXATE
     Indication: Non-Hodgkin^s lymphoma
  10. VINCRISTINE [Suspect]
     Active Substance: VINCRISTINE
     Indication: Plasmablastic lymphoma
     Dosage: UNK UNK, CYCLICAL; SIX CYCLES DAEPOCH REGIMEN
     Route: 065
  11. VINCRISTINE [Suspect]
     Active Substance: VINCRISTINE
     Indication: Non-Hodgkin^s lymphoma
     Dosage: UNK UNK, CYCLICAL; EPOCH REGIMEN
     Route: 065
  12. CYCLOPHOSPHAMIDE [Suspect]
     Active Substance: CYCLOPHOSPHAMIDE
     Indication: Plasmablastic lymphoma
     Dosage: UNK, CYCLICAL; SIX CYCLES DAEPOCH REGIMEN
     Route: 065
  13. CYCLOPHOSPHAMIDE [Suspect]
     Active Substance: CYCLOPHOSPHAMIDE
     Indication: Non-Hodgkin^s lymphoma
     Dosage: UNK, CYCLICAL; EPOCH REGIMEN
     Route: 065
  14. RITUXIMAB [Suspect]
     Active Substance: RITUXIMAB
     Indication: Plasmablastic lymphoma
     Dosage: UNK, CYCLICAL; SIX CYCLES DAEPOCH REGIMEN
     Route: 065
  15. RITUXIMAB [Suspect]
     Active Substance: RITUXIMAB
     Indication: Non-Hodgkin^s lymphoma
  16. IFOSFAMIDE [Suspect]
     Active Substance: IFOSFAMIDE
     Indication: Plasmablastic lymphoma
     Dosage: UNK; IVAC PROTOCOL
     Route: 065
  17. IFOSFAMIDE [Suspect]
     Active Substance: IFOSFAMIDE
     Indication: Non-Hodgkin^s lymphoma
  18. CYTARABINE [Suspect]
     Active Substance: CYTARABINE
     Indication: Plasmablastic lymphoma
     Dosage: UNK
     Route: 065
  19. CYTARABINE [Suspect]
     Active Substance: CYTARABINE
     Indication: Non-Hodgkin^s lymphoma
  20. GEMCITABINE [Suspect]
     Active Substance: GEMCITABINE
     Indication: Plasmablastic lymphoma
     Dosage: UNK, CYCLICAL; GEMOX REGIMEN GEMOX REGIMEN
     Route: 065
  21. GEMCITABINE [Suspect]
     Active Substance: GEMCITABINE
     Indication: Non-Hodgkin^s lymphoma
  22. OXALIPLATIN [Suspect]
     Active Substance: OXALIPLATIN
     Indication: Plasmablastic lymphoma
     Dosage: UNK, CYCLICAL; TWO CYCLES GEMOX REGIMEN
     Route: 065
  23. OXALIPLATIN [Suspect]
     Active Substance: OXALIPLATIN
     Indication: Non-Hodgkin^s lymphoma
  24. DARATUMUMAB [Suspect]
     Active Substance: DARATUMUMAB
     Indication: Plasmablastic lymphoma
     Dosage: UNK (FOURTH-LINE TREATMENT)
     Route: 065
     Dates: start: 202202
  25. DARATUMUMAB [Suspect]
     Active Substance: DARATUMUMAB
     Indication: Non-Hodgkin^s lymphoma
     Dosage: UNK, CYCLICAL ALONG WITH ETOPOSIDE
     Route: 065
     Dates: start: 202202
  26. DARATUMUMAB [Suspect]
     Active Substance: DARATUMUMAB
     Dosage: UNK, PATIENT LATER RECEIVED ONLY DARATUMUMAB
     Route: 065
     Dates: start: 202202
  27. MESNA [Concomitant]
     Active Substance: MESNA
     Indication: Prophylaxis
     Dosage: UNK
     Route: 065

REACTIONS (5)
  - Sepsis [Fatal]
  - Bronchopulmonary aspergillosis [Fatal]
  - Fungal infection [Fatal]
  - Drug ineffective [Fatal]
  - Off label use [Unknown]
